FAERS Safety Report 5855778-7 (Version None)
Quarter: 2008Q3

REPORT INFORMATION
  Report Type: 
  Country: None (occurrence: None)
  Receive Date: 20080825
  Receipt Date: 20080820
  Transmission Date: 20090109
  Serious: Yes (Life-Threatening, Hospitalization, Other)
  Sender: FDA-Public Use
  Company Number: US-BRISTOL-MYERS SQUIBB COMPANY-14310429

PATIENT
  Age: 65 Year
  Sex: Female

DRUGS (3)
  1. DEFINITY [Suspect]
  2. DOBUTAMINE HCL [Suspect]
     Route: 042
  3. ATROPINE [Suspect]

REACTIONS (2)
  - HAEMORRHAGIC STROKE [None]
  - HYPERTENSION [None]
